FAERS Safety Report 8385077-3 (Version None)
Quarter: 2012Q2

REPORT INFORMATION
  Report Type: 
  Country: None (occurrence: None)
  Receive Date: 20120524
  Receipt Date: 20120510
  Transmission Date: 20120825
  Serious: Yes (Other)
  Sender: FDA-Public Use
  Company Number: CHPA2012US010891

PATIENT
  Sex: Male

DRUGS (2)
  1. BENEFIBER UNKNOWN [Suspect]
     Indication: DIVERTICULITIS
     Dosage: 6 TSP, BID
     Route: 048
     Dates: start: 20100501
  2. BENEFIBER UNKNOWN [Suspect]
     Dosage: UNK, UNK
     Route: 048
     Dates: start: 20070101, end: 20100501

REACTIONS (4)
  - OFF LABEL USE [None]
  - OVERDOSE [None]
  - DIVERTICULITIS [None]
  - ABDOMINAL PAIN UPPER [None]
